FAERS Safety Report 8113633-6 (Version None)
Quarter: 2011Q4

REPORT INFORMATION
  Report Type: 
  Country: None (occurrence: None)
  Receive Date: 20111227
  Receipt Date: 20111006
  Transmission Date: 20120403
  Serious: Yes (Other)
  Sender: FDA-Public Use
  Company Number: PHEH2011US03148

PATIENT
  Age: 51 Year
  Sex: Male

DRUGS (2)
  1. GILENYA [Suspect]
     Indication: MULTIPLE SCLEROSIS
     Dosage: 0.5 MG, QD, ORAL  : 0.5 MG, QOD, ORAL
     Route: 048
     Dates: end: 20110901
  2. GILENYA [Suspect]
     Indication: MULTIPLE SCLEROSIS
     Dosage: 0.5 MG, QD, ORAL  : 0.5 MG, QOD, ORAL
     Route: 048
     Dates: start: 20110512

REACTIONS (2)
  - DRUG ADMINISTRATION ERROR [None]
  - CD4 LYMPHOCYTES DECREASED [None]
